FAERS Safety Report 9565379 (Version 2)
Quarter: 2013Q4

REPORT INFORMATION
  Report Type: Spontaneous
  Country: US (occurrence: US)
  Receive Date: 20130930
  Receipt Date: 20131002
  Transmission Date: 20140711
  Serious: No
  Sender: FDA-Public Use
  Company Number: US-BAYER-2013-115768

PATIENT
  Sex: Female

DRUGS (2)
  1. CLIMARA [Suspect]
     Dosage: DAILY DOSE .075 MG
     Route: 062
  2. CLIMARA [Suspect]
     Dosage: DAILY DOSE .075 MG
     Route: 062

REACTIONS (3)
  - Application site erythema [Not Recovered/Not Resolved]
  - Application site irritation [Not Recovered/Not Resolved]
  - Product adhesion issue [None]
